FAERS Safety Report 21914708 (Version 1)
Quarter: 2023Q1

REPORT INFORMATION
  Report Type: Spontaneous
  Country: IT (occurrence: IT)
  Receive Date: 20230126
  Receipt Date: 20230126
  Transmission Date: 20230418
  Serious: Yes (Hospitalization, Other)
  Sender: FDA-Public Use
  Company Number: IT-MINISAL02-904878

PATIENT
  Age: 79 Year
  Sex: Male
  Weight: 78 kg

DRUGS (1)
  1. METFORMIN HYDROCHLORIDE [Suspect]
     Active Substance: METFORMIN HYDROCHLORIDE
     Indication: Type 2 diabetes mellitus
     Dosage: 1700 MILLIGRAM(850MG 1CP X 2)
     Route: 048
     Dates: start: 2014, end: 20230110

REACTIONS (5)
  - Metabolic acidosis [Recovering/Resolving]
  - Hyperkalaemia [Recovering/Resolving]
  - Respiratory failure [Recovering/Resolving]
  - Cardiac arrest [Recovering/Resolving]
  - Acute kidney injury [Recovering/Resolving]

NARRATIVE: CASE EVENT DATE: 20230110
